FAERS Safety Report 10445327 (Version 2)
Quarter: 2014Q4

REPORT INFORMATION
  Report Type: Spontaneous
  Country: US (occurrence: US)
  Receive Date: 20140910
  Receipt Date: 20141201
  Transmission Date: 20150528
  Serious: Yes (Other)
  Sender: FDA-Public Use
  Company Number: US-BAYER-2014-133903

PATIENT
  Age: 30 Year
  Sex: Female

DRUGS (1)
  1. MIRENA [Suspect]
     Active Substance: LEVONORGESTREL
     Indication: CONTRACEPTION
     Dosage: 20 MCG/24HR, CONT
     Route: 015
     Dates: start: 20140724, end: 20140830

REACTIONS (8)
  - Device dislocation [None]
  - Procedural complication [None]
  - Post procedural discomfort [None]
  - Keloid scar [Not Recovered/Not Resolved]
  - Incision site pain [None]
  - Procedural pain [Recovered/Resolved]
  - Device dislocation [None]
  - Feeling abnormal [None]

NARRATIVE: CASE EVENT DATE: 2014
